FAERS Safety Report 7581376-3 (Version None)
Quarter: 2011Q2

REPORT INFORMATION
  Report Type: 
  Country: None (occurrence: None)
  Receive Date: 20110629
  Receipt Date: 20110624
  Transmission Date: 20111010
  Serious: Yes (Hospitalization, Other)
  Sender: FDA-Public Use
  Company Number: FR-PFIZER INC-2011140547

PATIENT
  Age: 71 Year
  Sex: Female

DRUGS (9)
  1. DICYNONE [Suspect]
     Indication: PAIN
     Dosage: 500 MG, 3X/DAY
     Route: 048
     Dates: start: 20110202, end: 20110404
  2. ESBERIVEN FORTE [Suspect]
     Dosage: TWICE DAILY
     Route: 048
  3. DICYNONE [Suspect]
     Indication: FLUSHING
  4. ANASTROZOLE [Suspect]
     Indication: BREAST CANCER
     Dosage: 1 MG, 1X/DAY
     Route: 048
     Dates: start: 20051201, end: 20110509
  5. LORAZEPAM [Suspect]
     Dosage: 1 MG, 1X/DAY
     Route: 048
  6. ATORVASTATIN CALCIUM [Suspect]
     Dosage: 10 MG, 3X/DAY
     Route: 048
  7. METFORMIN HCL [Suspect]
     Indication: TYPE 2 DIABETES MELLITUS
     Dosage: 1000 MG, 3X/DAY
     Route: 048
  8. LASIX [Suspect]
     Indication: OEDEMA PERIPHERAL
     Dosage: 500 MG, A? TO A? TABLET PER DAY
     Route: 048
     Dates: start: 20100101
  9. GLYBURIDE [Suspect]
     Indication: TYPE 2 DIABETES MELLITUS
     Dosage: 2.5 MG, 2X/DAY
     Route: 048

REACTIONS (5)
  - VASCULAR PURPURA [None]
  - LEUKOCYTOCLASTIC VASCULITIS [None]
  - THROMBOCYTOPENIA [None]
  - HEPATITIS C [None]
  - DYSPNOEA [None]
